FAERS Safety Report 21437906 (Version 1)
Quarter: 2022Q4

REPORT INFORMATION
  Report Type: Report from Study
  Country: US (occurrence: US)
  Receive Date: 20221011
  Receipt Date: 20221011
  Transmission Date: 20230112
  Serious: No
  Sender: FDA-Public Use
  Company Number: US-ABBVIE-4145132

PATIENT
  Sex: Female

DRUGS (3)
  1. SKYRIZI [Suspect]
     Active Substance: RISANKIZUMAB-RZAA
     Indication: Psoriasis
     Route: 058
     Dates: start: 2022
  2. SKYRIZI [Suspect]
     Active Substance: RISANKIZUMAB-RZAA
     Dosage: ONE IN ONCE FREQUENCY?WEEK FOUR
     Route: 058
     Dates: start: 20220801, end: 20220801
  3. SKYRIZI [Suspect]
     Active Substance: RISANKIZUMAB-RZAA
     Dosage: ONE IN ONCE FREQUENCY?WEEK ZERO
     Route: 058
     Dates: start: 20220701, end: 20220701

REACTIONS (5)
  - Burning sensation [Recovered/Resolved]
  - Erythema [Recovered/Resolved]
  - Fatigue [Unknown]
  - Pain [Recovered/Resolved]
  - Pruritus [Recovered/Resolved]

NARRATIVE: CASE EVENT DATE: 20220101
